FAERS Safety Report 24960564 (Version 2)
Quarter: 2025Q1

REPORT INFORMATION
  Report Type: Spontaneous
  Country: US (occurrence: US)
  Receive Date: 20250212
  Receipt Date: 20250212
  Transmission Date: 20250408
  Serious: No
  Sender: ALKERMES
  Company Number: US-ALKERMES INC.-ALK-2025-000296

PATIENT
  Age: 47 Year
  Sex: Female
  Weight: 63.492 kg

DRUGS (3)
  1. VIVITROL [Suspect]
     Active Substance: NALTREXONE
     Indication: Drug dependence
     Route: 030
     Dates: start: 20241021
  2. PRAZOSIN [Concomitant]
     Active Substance: PRAZOSIN
     Indication: Alcoholism
     Route: 065
  3. HYDROXYZINE [Concomitant]
     Active Substance: HYDROXYZINE HYDROCHLORIDE
     Indication: Product used for unknown indication
     Route: 065

REACTIONS (7)
  - Product administered at inappropriate site [Recovered/Resolved]
  - Off label use [Unknown]
  - Blood pressure decreased [Unknown]
  - Injection site nodule [Recovering/Resolving]
  - Injection site induration [Not Recovered/Not Resolved]
  - Injection site warmth [Not Recovered/Not Resolved]
  - Injection site cellulitis [Not Recovered/Not Resolved]

NARRATIVE: CASE EVENT DATE: 20241001
